FAERS Safety Report 5243963-7 (Version None)
Quarter: 2007Q1

REPORT INFORMATION
  Report Type: 
  Country: None (occurrence: None)
  Receive Date: 20070220
  Receipt Date: 20070220
  Transmission Date: 20070707
  Serious: Yes (Other)
  Sender: FDA-Public Use
  Company Number: None

PATIENT
  Sex: Female
  Weight: 99.7913 kg

DRUGS (1)
  1. KEPPRA [Suspect]
     Indication: EPILEPSY
     Dosage: ONE TABLE TWICE A DAY PO
     Route: 048
     Dates: start: 20070201, end: 20070212

REACTIONS (4)
  - ANGER [None]
  - CRYING [None]
  - DRUG EXPOSURE DURING PREGNANCY [None]
  - THINKING ABNORMAL [None]
